FAERS Safety Report 6902050-X (Version None)
Quarter: 2010Q3

REPORT INFORMATION
  Report Type: 
  Country: None (occurrence: None)
  Receive Date: 20100803
  Receipt Date: 20080415
  Transmission Date: 20110219
  Serious: No
  Sender: FDA-Public Use
  Company Number: US-PFIZER INC-2008033687

PATIENT
  Sex: Female

DRUGS (7)
  1. LYRICA [Suspect]
     Indication: DIABETIC NEUROPATHY
     Dates: start: 20080301
  2. COUMADIN [Interacting]
     Indication: ATRIAL FIBRILLATION
     Dates: start: 20040401
  3. NOVOLIN [Concomitant]
  4. SITAGLIPTIN [Concomitant]
  5. INSULIN DETEMIR [Concomitant]
  6. REGLAN [Concomitant]
  7. PRILOSEC [Concomitant]

REACTIONS (2)
  - DRUG INTERACTION [None]
  - INTERNATIONAL NORMALISED RATIO INCREASED [None]
